FAERS Safety Report 24828746 (Version 2)
Quarter: 2025Q3

REPORT INFORMATION
  Report Type: Report from Study
  Country: US (occurrence: US)
  Receive Date: 20250110
  Receipt Date: 20250810
  Transmission Date: 20251020
  Serious: Yes (Hospitalization)
  Sender: ALEXION PHARMACEUTICALS
  Company Number: US-AstraZeneca-CH-00781287A

PATIENT
  Sex: Female
  Weight: 45.351 kg

DRUGS (1)
  1. OSIMERTINIB [Suspect]
     Active Substance: OSIMERTINIB
     Indication: Lung carcinoma cell type unspecified stage IV
     Dosage: 80 MILLIGRAM, QD
     Dates: start: 202408

REACTIONS (3)
  - Bladder disorder [Not Recovered/Not Resolved]
  - Cystitis [Unknown]
  - Dry eye [Unknown]
